FAERS Safety Report 4582368-9 (Version None)
Quarter: 2005Q1

REPORT INFORMATION
  Report Type: 
  Country: None (occurrence: None)
  Receive Date: 20050119
  Receipt Date: 20031125
  Transmission Date: 20050727
  Serious: Yes (Other)
  Sender: FDA-Public Use
  Company Number: US-JNJFOC-20031105010

PATIENT
  Age: 65 Year
  Sex: Male

DRUGS (1)
  1. DOXIL [Suspect]
     Indication: KAPOSI'S SARCOMA
     Dosage: 20 MG/M2, 1 IN 3 WEEK, INTRAVENOUS
     Route: 042
     Dates: start: 20021101

REACTIONS (1)
  - KAPOSI'S SARCOMA [None]
